FAERS Safety Report 16767696 (Version 1)
Quarter: 2019Q3

REPORT INFORMATION
  Report Type: Report from Study
  Country: GB (occurrence: GB)
  Receive Date: 20190903
  Receipt Date: 20190903
  Transmission Date: 20191005
  Serious: Yes (Hospitalization, Other)
  Sender: FDA-Public Use
  Company Number: GB-PFIZER INC-2019370839

PATIENT
  Sex: Female

DRUGS (3)
  1. GABAPENTIN. [Suspect]
     Active Substance: GABAPENTIN
     Dosage: UNK
     Route: 065
  2. TRAMADOL. [Suspect]
     Active Substance: TRAMADOL
     Dosage: UNK
     Route: 065
  3. BRABIO [Suspect]
     Active Substance: GLATIRAMER ACETATE
     Indication: MULTIPLE SCLEROSIS
     Dosage: 40 MILLIGRAM, 3XW
     Route: 058
     Dates: start: 20190329

REACTIONS (8)
  - Multiple sclerosis relapse [Unknown]
  - Anxiety [Unknown]
  - Paraesthesia [Unknown]
  - Injection site bruising [Unknown]
  - Hangover [Unknown]
  - Product dose omission [Unknown]
  - Fatigue [Unknown]
  - Spinal pain [Unknown]
